FAERS Safety Report 8434614 (Version 2)
Quarter: 2012Q4

REPORT INFORMATION
  Report Type: 
  Country: FR (occurrence: FR)
  Receive Date: 20120301
  Receipt Date: 20120919
  Transmission Date: 20130627
  Serious: Yes (Other)
  Sender: FDA-Public Use
  Company Number: FR-UCBSA-052214

PATIENT
  Age: 1 Month
  Sex: Male
  Weight: 3.5 kg

DRUGS (2)
  1. KEPPRA [Suspect]
     Dosage: 100MG/ML
     Route: 048
     Dates: start: 20120112, end: 20120114
  2. KEPPRA [Suspect]
     Dosage: 100MG/ML
     Route: 048
     Dates: start: 20120109, end: 20120111

REACTIONS (3)
  - Drug administration error [Recovered/Resolved]
  - Incorrect dose administered [Recovered/Resolved]
  - Accidental overdose [Recovered/Resolved]
